FAERS Safety Report 4476726-0 (Version None)
Quarter: 2004Q4

REPORT INFORMATION
  Report Type: 
  Country: None (occurrence: None)
  Receive Date: 20041015
  Receipt Date: 20041015
  Transmission Date: 20050328
  Serious: Yes (Life-Threatening)
  Sender: FDA-Public Use
  Company Number: None

PATIENT
  Age: 87 Year
  Sex: Female
  Weight: 86 kg

DRUGS (12)
  1. PREDNISONE [Suspect]
     Indication: ASTHMA
     Dosage: 40MG  DAILY   ORAL
     Route: 048
     Dates: start: 20040718, end: 20040808
  2. PREDNISONE [Suspect]
     Indication: CHRONIC OBSTRUCTIVE AIRWAYS DISEASE
     Dosage: 40MG  DAILY   ORAL
     Route: 048
     Dates: start: 20040718, end: 20040808
  3. WARFARIN [Suspect]
     Indication: DEEP VEIN THROMBOSIS
     Dosage: ORAL
     Route: 048
     Dates: start: 19920701, end: 20040808
  4. WARFARIN [Suspect]
     Indication: PULMONARY EMBOLISM
     Dosage: ORAL
     Route: 048
     Dates: start: 19920701, end: 20040808
  5. ZITHROMAX [Concomitant]
  6. GLIPIZIDE [Concomitant]
  7. ADVAIR DISKUS 100/50 [Concomitant]
  8. AVANDIDA [Concomitant]
  9. DOXAZOSIN [Concomitant]
  10. DILTIAZEM HCL [Concomitant]
  11. FUROSEMIDE [Concomitant]
  12. AMBIEN [Concomitant]

REACTIONS (4)
  - GASTROINTESTINAL HAEMORRHAGE [None]
  - HAEMATOCRIT DECREASED [None]
  - HAEMOGLOBIN DECREASED [None]
  - OESOPHAGEAL DISORDER [None]
